FAERS Safety Report 7866964-9 (Version None)
Quarter: 2011Q4

REPORT INFORMATION
  Report Type: 
  Country: None (occurrence: None)
  Receive Date: 20111028
  Receipt Date: 20111024
  Transmission Date: 20120403
  Serious: Yes (Hospitalization, Other)
  Sender: FDA-Public Use
  Company Number: US-PERRIGO-11US009124

PATIENT
  Age: 50 Year
  Sex: Female

DRUGS (1)
  1. NAPROXEN SODIUM [Suspect]
     Indication: INTENTIONAL SELF-INJURY
     Dosage: 11000 MG, SINGLE
     Route: 048
     Dates: start: 20111024, end: 20111024

REACTIONS (1)
  - INTENTIONAL OVERDOSE [None]
